FAERS Safety Report 8511701-8 (Version None)
Quarter: 2012Q3

REPORT INFORMATION
  Report Type: 
  Country: None (occurrence: None)
  Receive Date: 20120716
  Receipt Date: 20120711
  Transmission Date: 20120928
  Serious: Yes (Hospitalization)
  Sender: FDA-Public Use
  Company Number: US-UCBSA-061258

PATIENT
  Age: 43 Year
  Sex: Male
  Weight: 88.6 kg

DRUGS (1)
  1. CIMZIA [Suspect]
     Indication: SPONDYLITIS
     Route: 058

REACTIONS (2)
  - COLITIS [None]
  - DIVERTICULITIS [None]
